FAERS Safety Report 9493176 (Version 2)
Quarter: 2013Q4

REPORT INFORMATION
  Report Type: Spontaneous
  Country: US (occurrence: US)
  Receive Date: 20130902
  Receipt Date: 20131030
  Transmission Date: 20140711
  Serious: Yes (Hospitalization, Other)
  Sender: FDA-Public Use
  Company Number: US-BRISTOL-MYERS SQUIBB COMPANY-19229046

PATIENT
  Age: 31 Year
  Sex: Female

DRUGS (6)
  1. METFORMIN HCL [Suspect]
     Indication: TYPE 2 DIABETES MELLITUS
     Route: 048
     Dates: start: 2009, end: 20130715
  2. VICTOZA [Suspect]
     Indication: TYPE 2 DIABETES MELLITUS
     Dates: start: 20120217, end: 20130715
  3. LISINOPRIL [Suspect]
  4. FENOFIBRATE [Concomitant]
  5. OMEPRAZOLE [Concomitant]
  6. METHOCARBAMOL [Concomitant]

REACTIONS (1)
  - Pancreatitis [Recovered/Resolved]
